FAERS Safety Report 8171547-X (Version None)
Quarter: 2012Q1

REPORT INFORMATION
  Report Type: 
  Country: None (occurrence: None)
  Receive Date: 20120228
  Receipt Date: 20120227
  Transmission Date: 20120608
  Serious: No
  Sender: FDA-Public Use
  Company Number: US-PFIZER INC-2012051772

PATIENT
  Sex: Male
  Weight: 41.723 kg

DRUGS (2)
  1. ADVIL MIGRAINE LIQUI-GELS [Suspect]
     Indication: INFLUENZA
     Dosage: UNK
     Dates: start: 20120225
  2. ADVIL MIGRAINE LIQUI-GELS [Suspect]
     Indication: HEADACHE

REACTIONS (3)
  - FEELING HOT [None]
  - NECK PAIN [None]
  - RASH MACULAR [None]
